FAERS Safety Report 5574124-X (Version None)
Quarter: 2007Q4

REPORT INFORMATION
  Report Type: 
  Country: None (occurrence: None)
  Receive Date: 20071221
  Receipt Date: 20071207
  Transmission Date: 20080405
  Serious: Yes (Death, Life-Threatening)
  Sender: FDA-Public Use
  Company Number: 2007-03320

PATIENT
  Age: 78 Year
  Sex: Male
  Weight: 49 kg

DRUGS (7)
  1. VELCADE [Suspect]
     Indication: MULTIPLE MYELOMA
     Dosage: 1.00 MG/M2, INTRAVEOUS
     Route: 042
     Dates: start: 20070910, end: 20070921
  2. DEXAMETHASONE TAB [Suspect]
     Indication: MULTIPLE MYELOMA
  3. PAXIL [Concomitant]
  4. LEUCOCYTE POOR RED CELLS [Concomitant]
  5. ITRACONAZOLE [Concomitant]
  6. MAXIPIME [Concomitant]
  7. NEUTROGIN [Concomitant]

REACTIONS (7)
  - BLOOD AMYLASE INCREASED [None]
  - CEREBELLAR HAEMORRHAGE [None]
  - DEPRESSION [None]
  - DISSEMINATED INTRAVASCULAR COAGULATION [None]
  - FALL [None]
  - PANCYTOPENIA [None]
  - SEPSIS [None]
